FAERS Safety Report 19192447 (Version 1)
Quarter: 2021Q2

REPORT INFORMATION
  Report Type: Spontaneous
  Country: US (occurrence: US)
  Receive Date: 20210429
  Receipt Date: 20210429
  Transmission Date: 20210717
  Serious: Yes (Other)
  Sender: FDA-Public Use
  Company Number: US-GILEAD-2021-0526011

PATIENT
  Sex: Female

DRUGS (1)
  1. SOFOSBUVIR;VELPATASVIR [Suspect]
     Active Substance: SOFOSBUVIR\VELPATASVIR
     Indication: CHRONIC HEPATITIS C
     Dosage: 1 DOSAGE FORM, QD
     Route: 048
     Dates: start: 20210319

REACTIONS (7)
  - Paraesthesia [Unknown]
  - Rheumatoid arthritis [Unknown]
  - Lacrimation increased [Unknown]
  - Muscle spasms [Unknown]
  - Rhinalgia [Unknown]
  - Upper-airway cough syndrome [Unknown]
  - Nasal oedema [Unknown]
